FAERS Safety Report 7684692-X (Version None)
Quarter: 2011Q3

REPORT INFORMATION
  Report Type: 
  Country: None (occurrence: None)
  Receive Date: 20110816
  Receipt Date: 20110808
  Transmission Date: 20111222
  Serious: Yes (Other)
  Sender: FDA-Public Use
  Company Number: GB-CEPHALON-US017751

PATIENT
  Sex: Female

DRUGS (2)
  1. TPN [Concomitant]
     Route: 065
  2. PROVIGIL [Suspect]
     Indication: NARCOLEPSY
     Route: 048

REACTIONS (2)
  - HYPOGLYCAEMIA [None]
  - DIZZINESS [None]
